FAERS Safety Report 10936321 (Version 1)
Quarter: 2015Q1

REPORT INFORMATION
  Report Type: Spontaneous
  Country: US (occurrence: None)
  Receive Date: 20150320
  Receipt Date: 20150320
  Transmission Date: 20150721
  Serious: Yes (Other)
  Sender: FDA-Public Use
  Company Number: None

PATIENT
  Age: 47 Year
  Sex: Female
  Weight: 65.77 kg

DRUGS (5)
  1. MULTIVITAMINS [Concomitant]
     Active Substance: VITAMINS
  2. CLARATIN [Concomitant]
  3. 6MP [Concomitant]
     Active Substance: MERCAPTOPURINE
  4. FOLIC ACID. [Concomitant]
     Active Substance: FOLIC ACID
  5. ENTYVIO [Suspect]
     Active Substance: VEDOLIZUMAB
     Indication: COLITIS ULCERATIVE
     Dosage: INFUSION EVERY 8 WEEKS, INTO A VEIN
     Route: 042
     Dates: start: 20141222, end: 20150216

REACTIONS (5)
  - Yellow skin [None]
  - Ocular icterus [None]
  - Chromaturia [None]
  - Blood bilirubin increased [None]
  - Jaundice [None]

NARRATIVE: CASE EVENT DATE: 20150303
